FAERS Safety Report 11529336 (Version 1)
Quarter: 2015Q3

REPORT INFORMATION
  Report Type: Spontaneous
  Country: US (occurrence: None)
  Receive Date: 20150918
  Receipt Date: 20150918
  Transmission Date: 20151125
  Serious: Yes (Hospitalization)
  Sender: FDA-Public Use
  Company Number: None

PATIENT
  Sex: Female
  Weight: 72.3 kg

DRUGS (11)
  1. NADOLOL. [Concomitant]
     Active Substance: NADOLOL
  2. POTASSIUM [Concomitant]
     Active Substance: POTASSIUM
  3. RIFAXIMIN [Concomitant]
     Active Substance: RIFAXIMIN
  4. LASIX [Concomitant]
     Active Substance: FUROSEMIDE
  5. VITAMIN D [Concomitant]
     Active Substance: CHOLECALCIFEROL
  6. SIMETHICONE (DIMETHICONE) [Concomitant]
     Active Substance: DIMETHICONE
  7. HARVONI [Suspect]
     Active Substance: LEDIPASVIR\SOFOSBUVIR
     Indication: HEPATITIS C
     Dosage: 90/400 MG
     Route: 048
     Dates: start: 20141117, end: 20150504
  8. PREGRAF [Concomitant]
  9. PRILOSEC [Concomitant]
     Active Substance: OMEPRAZOLE MAGNESIUM
  10. BENTYL [Concomitant]
     Active Substance: DICYCLOMINE HYDROCHLORIDE
  11. AMILORIDE [Concomitant]
     Active Substance: AMILORIDE

REACTIONS (1)
  - Campylobacter gastroenteritis [None]

NARRATIVE: CASE EVENT DATE: 20150129
